FAERS Safety Report 15384909 (Version 2)
Quarter: 2018Q4

REPORT INFORMATION
  Report Type: Spontaneous
  Country: US (occurrence: US)
  Receive Date: 20180914
  Receipt Date: 20181016
  Transmission Date: 20190204
  Serious: No
  Sender: FDA-Public Use
  Company Number: US-PFIZER INC-2018368598

PATIENT
  Age: 66 Year
  Sex: Female

DRUGS (1)
  1. XELJANZ XR [Suspect]
     Active Substance: TOFACITINIB CITRATE
     Dosage: 11 MG, UNK
     Dates: start: 20180813

REACTIONS (5)
  - Muscle spasms [Unknown]
  - Lip swelling [Unknown]
  - Eye swelling [Unknown]
  - Urinary tract infection [Unknown]
  - Eye pruritus [Unknown]

NARRATIVE: CASE EVENT DATE: 2018
